FAERS Safety Report 4804265-3 (Version None)
Quarter: 2005Q4

REPORT INFORMATION
  Report Type: 
  Country: None (occurrence: None)
  Receive Date: 20051020
  Receipt Date: 20051017
  Transmission Date: 20060501
  Serious: Yes (Hospitalization)
  Sender: FDA-Public Use
  Company Number: IT-JNJFOC-20051003865

PATIENT
  Sex: Male

DRUGS (6)
  1. DURAGESIC-100 [Suspect]
     Indication: HEADACHE
     Route: 062
  2. MANNITOL [Concomitant]
     Route: 065
  3. NOVONORM [Concomitant]
     Route: 065
  4. ROCEPHIN [Concomitant]
     Route: 065
  5. TEGRETOL [Concomitant]
     Route: 065
  6. EUTIROX [Concomitant]
     Route: 065

REACTIONS (1)
  - TOXIC EPIDERMAL NECROLYSIS [None]
